FAERS Safety Report 22102920 (Version 3)
Quarter: 2023Q1

REPORT INFORMATION
  Report Type: Spontaneous
  Country: US (occurrence: US)
  Receive Date: 20230316
  Receipt Date: 20230329
  Transmission Date: 20230417
  Serious: Yes (Other)
  Sender: FDA-Public Use
  Company Number: US-PFIZER INC-202300112502

PATIENT
  Age: 60 Year
  Sex: Female
  Weight: 48.99 kg

DRUGS (2)
  1. ACCUPRIL [Suspect]
     Active Substance: QUINAPRIL HYDROCHLORIDE
     Dosage: UNK
  2. QUINAPRIL [Suspect]
     Active Substance: QUINAPRIL
     Dosage: UNK FOR YEARS

REACTIONS (2)
  - Recalled product administered [Unknown]
  - Endometrial cancer [Unknown]

NARRATIVE: CASE EVENT DATE: 20220101
